FAERS Safety Report 8765972 (Version 4)
Quarter: 2013Q2

REPORT INFORMATION
  Report Type: Spontaneous
  Country: GB (occurrence: GB)
  Receive Date: 20120904
  Receipt Date: 20130522
  Transmission Date: 20140414
  Serious: Yes (Hospitalization, Other)
  Sender: FDA-Public Use
  Company Number: GB-009507513-1208GBR006087

PATIENT
  Age: 33 Year
  Sex: Female

DRUGS (1)
  1. NEXPLANON [Suspect]
     Dosage: UNK
     Route: 059
     Dates: start: 20100304, end: 20120809

REACTIONS (5)
  - Ectopic pregnancy [Recovered/Resolved]
  - Gastrointestinal disorder [Unknown]
  - Unintended pregnancy [Recovered/Resolved]
  - Menstruation irregular [Unknown]
  - Breast feeding [Unknown]
